FAERS Safety Report 6336853-X (Version None)
Quarter: 2009Q3

REPORT INFORMATION
  Report Type: 
  Country: None (occurrence: None)
  Receive Date: 20090901
  Receipt Date: 20090831
  Transmission Date: 20100115
  Serious: Yes (Other)
  Sender: FDA-Public Use
  Company Number: US-B.I. PHARMACEUTICALS,INC./RIDGEFIELD-2009-BP-09590BP

PATIENT
  Sex: Female

DRUGS (16)
  1. SPIRIVA [Suspect]
     Indication: PULMONARY CONGESTION
     Dosage: 18 MCG
     Dates: start: 20060101
  2. VERAPAMIL [Concomitant]
     Dosage: 240 MG
  3. EXELON [Concomitant]
  4. ADVAIR HFA [Concomitant]
  5. ASPIRIN [Concomitant]
     Dosage: 81 MG
  6. GERITOL COMPLETE [Concomitant]
  7. KLOR-CON M20 [Concomitant]
  8. SYNTHROID [Concomitant]
     Dosage: 200 MCG
  9. MAGNESIUM OXIDE [Concomitant]
     Dosage: 1600 MG
  10. PLAVIX [Concomitant]
     Dosage: 75 MG
  11. ZOCOR [Concomitant]
     Dosage: 20 MG
  12. TRAMADOL HCL [Concomitant]
     Dosage: 100 MG
  13. VICODIN [Concomitant]
  14. NEXIUM [Concomitant]
     Dosage: 40 MG
  15. TUMS [Concomitant]
  16. ALBUTEROL [Concomitant]

REACTIONS (4)
  - CONTUSION [None]
  - HIP FRACTURE [None]
  - ROAD TRAFFIC ACCIDENT [None]
  - SKIN LACERATION [None]
